FAERS Safety Report 4590103-3 (Version None)
Quarter: 2005Q2

REPORT INFORMATION
  Report Type: 
  Country: None (occurrence: None)
  Receive Date: 20050217
  Receipt Date: 20050207
  Transmission Date: 20051028
  Serious: Yes (Hospitalization)
  Sender: FDA-Public Use
  Company Number: 200510302GDS

PATIENT
  Age: 80 Year
  Sex: Female

DRUGS (7)
  1. ASPIRIN [Suspect]
     Indication: ANTICOAGULANT THERAPY
     Dosage: 100 MG, TOTAL DAILY, ORAL
     Route: 048
     Dates: start: 20040101, end: 20050106
  2. PLAVIX [Suspect]
     Indication: ANTICOAGULANT THERAPY
     Dosage: 75 MG, TOTAL DAILY, ORAL
     Route: 048
     Dates: end: 20050106
  3. LIQUEMINE (HEPARIN SODIUM) [Suspect]
     Indication: ANTICOAGULANT THERAPY
     Dates: end: 20050106
  4. RENITEN [Concomitant]
  5. CIPROXIN [Concomitant]
  6. PREDNISONE [Concomitant]
  7. NEXIUM [Concomitant]

REACTIONS (3)
  - APHASIA [None]
  - CEREBRAL HAEMORRHAGE [None]
  - COMA [None]
